FAERS Safety Report 25348867 (Version 1)
Quarter: 2025Q2

REPORT INFORMATION
  Report Type: Spontaneous
  Country: NZ (occurrence: NZ)
  Receive Date: 20250522
  Receipt Date: 20250522
  Transmission Date: 20250716
  Serious: Yes (Hospitalization)
  Sender: PHARMACEUTICAL ASSOC
  Company Number: NZ-PAIPHARMA-2025-NZ-000021

PATIENT
  Age: 50 Year
  Sex: Female

DRUGS (2)
  1. LACTULOSE [Suspect]
     Active Substance: LACTULOSE
     Indication: Constipation
  2. METHADONE [Concomitant]
     Active Substance: METHADONE HYDROCHLORIDE
     Indication: Back pain
     Dosage: 100 MG ONCE DAILY

REACTIONS (1)
  - Pneumatosis intestinalis [Recovered/Resolved]
